FAERS Safety Report 19073846 (Version 2)
Quarter: 2021Q2

REPORT INFORMATION
  Report Type: Report from Study
  Country: US (occurrence: US)
  Receive Date: 20210330
  Receipt Date: 20210421
  Transmission Date: 20210717
  Serious: Yes (Hospitalization, Other)
  Sender: FDA-Public Use
  Company Number: NVSC2021US065763

PATIENT
  Age: 54 Year

DRUGS (1)
  1. ENTRESTO [Suspect]
     Active Substance: SACUBITRIL\VALSARTAN
     Indication: PRODUCT USED FOR UNKNOWN INDICATION
     Dosage: UNK UNK, BID
     Route: 048
     Dates: start: 202006

REACTIONS (13)
  - Thirst [Unknown]
  - Movement disorder [Unknown]
  - Cardiac failure congestive [Unknown]
  - Diarrhoea [Unknown]
  - Poor quality sleep [Unknown]
  - Irregular sleep phase [Unknown]
  - Gait inability [Unknown]
  - Peripheral swelling [Unknown]
  - Renal failure [Unknown]
  - Weight decreased [Unknown]
  - Arthralgia [Unknown]
  - Chest pain [Unknown]
  - Fear of falling [Unknown]

NARRATIVE: CASE EVENT DATE: 202009
